FAERS Safety Report 6038805-6 (Version None)
Quarter: 2009Q1

REPORT INFORMATION
  Report Type: 
  Country: None (occurrence: None)
  Receive Date: 20090115
  Receipt Date: 20090108
  Transmission Date: 20090719
  Serious: Yes (Hospitalization)
  Sender: FDA-Public Use
  Company Number: IT-AVENTIS-200820791GDDC

PATIENT
  Age: 40 Year
  Sex: Female

DRUGS (2)
  1. APIDRA [Suspect]
     Indication: TYPE 1 DIABETES MELLITUS
     Dosage: DOSE: TOTAL DAILY UNITS INCLUDES 26.6 BASAL INFUSION
     Route: 058
     Dates: start: 20071201
  2. INSULIN PUMP NOS [Suspect]

REACTIONS (2)
  - KETOACIDOSIS [None]
  - PRODUCT QUALITY ISSUE [None]
